FAERS Safety Report 10516014 (Version 1)
Quarter: 2014Q4

REPORT INFORMATION
  Report Type: Spontaneous
  Country: JP (occurrence: JP)
  Receive Date: 20141014
  Receipt Date: 20141014
  Transmission Date: 20150528
  Serious: Yes (Death)
  Sender: FDA-Public Use
  Company Number: JP-TEVA-515406ISR

PATIENT
  Sex: Male
  Weight: 38 kg

DRUGS (3)
  1. E-FEN BUCCAL(FENTANYL CITRATE) [Suspect]
     Active Substance: FENTANYL CITRATE
     Indication: BREAKTHROUGH PAIN
     Dosage: 50 MICROGRAM DAILY;
     Route: 002
     Dates: start: 20140713, end: 20140713
  2. FENTANYL CYTRATE [Concomitant]
     Indication: CANCER PAIN
     Route: 062
     Dates: start: 20140604
  3. FENTANYL CYTRATE [Concomitant]
     Route: 062
     Dates: start: 20140523, end: 20140531

REACTIONS (1)
  - Oropharyngeal cancer [Fatal]
